FAERS Safety Report 10064310 (Version 1)
Quarter: 2014Q2

REPORT INFORMATION
  Report Type: Spontaneous
  Country: US (occurrence: None)
  Receive Date: 20140407
  Receipt Date: 20140407
  Transmission Date: 20141212
  Serious: Yes (Other)
  Sender: FDA-Public Use
  Company Number: None

PATIENT
  Age: 20 Year
  Sex: Female
  Weight: 81.65 kg

DRUGS (1)
  1. NEXPLANON [Suspect]
     Dates: start: 20130829, end: 20140107

REACTIONS (3)
  - Haemorrhage [None]
  - Dysfunctional uterine bleeding [None]
  - Ovarian haemorrhage [None]
